FAERS Safety Report 6386988-0 (Version None)
Quarter: 2009Q4

REPORT INFORMATION
  Report Type: 
  Country: None (occurrence: None)
  Receive Date: 20091002
  Receipt Date: 20090925
  Transmission Date: 20100525
  Serious: Yes (Hospitalization)
  Sender: FDA-Public Use
  Company Number: FR-BAXTER-2009BH014736

PATIENT
  Sex: Male

DRUGS (1)
  1. SUPRANE [Suspect]
     Indication: OCCUPATIONAL EXPOSURE TO DRUG
     Route: 065

REACTIONS (2)
  - CYTOLYTIC HEPATITIS [None]
  - OCCUPATIONAL EXPOSURE TO DRUG [None]
